FAERS Safety Report 7807488 (Version 3)
Quarter: 2013Q3

REPORT INFORMATION
  Report Type: Spontaneous
  Country: FR (occurrence: FR)
  Receive Date: 20110210
  Receipt Date: 20130820
  Transmission Date: 20140515
  Serious: Yes (Hospitalization)
  Sender: FDA-Public Use
  Company Number: FR-GENZYME-THYM-1002297

PATIENT
  Age: 12 Year
  Sex: Female
  Weight: 28 kg

DRUGS (2)
  1. THYMOGLOBULINE [Suspect]
     Indication: RENAL TRANSPLANT
     Dosage: 1.5 MG/KG, QD
     Route: 042
     Dates: start: 20110130, end: 20110131
  2. THYMOGLOBULINE [Suspect]
     Dosage: 200 MG, ONCE
     Route: 042
     Dates: start: 20110201, end: 20110201

REACTIONS (6)
  - Pruritus [Recovered/Resolved]
  - Vomiting [Recovered/Resolved]
  - Thrombocytopenia [Recovered/Resolved]
  - Leukopenia [Recovered/Resolved]
  - Drug administration error [Recovered/Resolved]
  - Overdose [Recovered/Resolved]
